FAERS Safety Report 8436824-3 (Version None)
Quarter: 2012Q2

REPORT INFORMATION
  Report Type: 
  Country: None (occurrence: None)
  Receive Date: 20120611
  Receipt Date: 20120611
  Transmission Date: 20120825
  Serious: Yes (Life-Threatening, Hospitalization)
  Sender: FDA-Public Use
  Company Number: None

PATIENT
  Sex: Female
  Weight: 49.8957 kg

DRUGS (1)
  1. METHYLPREDNISOLONE [Suspect]
     Dosage: 6 FIRST DAY; NO MORE AFTEER FIRST 6 PILLS
     Dates: start: 20120502

REACTIONS (1)
  - THROMBOSIS [None]
